FAERS Safety Report 15763265 (Version 1)
Quarter: 2018Q4

REPORT INFORMATION
  Report Type: Report from Study
  Country: BR (occurrence: BR)
  Receive Date: 20181227
  Receipt Date: 20181227
  Transmission Date: 20190205
  Serious: Yes (Hospitalization, Other)
  Sender: FDA-Public Use
  Company Number: BR-ALEXION PHARMACEUTICALS INC.-A201814365

PATIENT
  Age: 3 Year
  Sex: Female
  Weight: 15 kg

DRUGS (6)
  1. CORTICOIDEX [Concomitant]
     Active Substance: DEXAMETHASONE SODIUM PHOSPHATE
     Indication: PRODUCT USED FOR UNKNOWN INDICATION
     Dosage: UNK
     Route: 065
  2. SOLIRIS [Suspect]
     Active Substance: ECULIZUMAB
     Dosage: 300 MG, Q2W
     Route: 042
     Dates: start: 20170103
  3. SOLIRIS [Suspect]
     Active Substance: ECULIZUMAB
     Indication: ATYPICAL HAEMOLYTIC URAEMIC SYNDROME
     Dosage: 600 MG, SINGLE
     Route: 042
     Dates: start: 20161227, end: 20161227
  4. SARCOTON [Concomitant]
     Indication: PRODUCT USED FOR UNKNOWN INDICATION
     Route: 065
  5. VITAMIN D                          /00107901/ [Concomitant]
     Active Substance: ERGOCALCIFEROL
     Indication: PRODUCT USED FOR UNKNOWN INDICATION
     Route: 065
  6. QUESTRAN [Concomitant]
     Active Substance: CHOLESTYRAMINE
     Indication: PRODUCT USED FOR UNKNOWN INDICATION
     Route: 065

REACTIONS (21)
  - Hepatic failure [Not Recovered/Not Resolved]
  - Portal vein thrombosis [Not Recovered/Not Resolved]
  - Oxygen saturation decreased [Unknown]
  - Tonsillitis [Unknown]
  - Hepatomegaly [Not Recovered/Not Resolved]
  - Gallbladder obstruction [Not Recovered/Not Resolved]
  - Weight increased [Recovered/Resolved]
  - Urine output decreased [Not Recovered/Not Resolved]
  - Aphthous ulcer [Unknown]
  - Oropharyngeal pain [Not Recovered/Not Resolved]
  - Feeding disorder [Recovered/Resolved]
  - Herpes virus infection [Unknown]
  - Pneumonia [Recovered/Resolved]
  - Pyrexia [Not Recovered/Not Resolved]
  - Bile duct obstruction [Not Recovered/Not Resolved]
  - Respiratory disorder [Recovered/Resolved]
  - Gallbladder enlargement [Not Recovered/Not Resolved]
  - Pharyngitis [Unknown]
  - Somnolence [Unknown]
  - Abdominal distension [Unknown]
  - Dyspnoea [Recovered/Resolved]

NARRATIVE: CASE EVENT DATE: 20181026
